FAERS Safety Report 5244302-8 (Version None)
Quarter: 2007Q1

REPORT INFORMATION
  Report Type: 
  Country: None (occurrence: None)
  Receive Date: 20070222
  Receipt Date: 20070214
  Transmission Date: 20070707
  Serious: Yes (Death, Congenital Anomaly)
  Sender: FDA-Public Use
  Company Number: 2007GB00325

PATIENT

DRUGS (1)
  1. TAMOXIFEN CITRATE [Suspect]
     Indication: BREAST CANCER
     Route: 064
     Dates: start: 20030101, end: 20060801

REACTIONS (2)
  - FOETAL MALFORMATION [None]
  - PREMATURE BABY [None]
